FAERS Safety Report 5251621-8 (Version None)
Quarter: 2007Q1

REPORT INFORMATION
  Report Type: 
  Country: None (occurrence: None)
  Receive Date: 20070228
  Receipt Date: 20061006
  Transmission Date: 20070707
  Serious: No
  Sender: FDA-Public Use
  Company Number: US-GLAXOSMITHKLINE-A0621668A

PATIENT
  Age: 17 Year
  Sex: Male
  Weight: 72.7 kg

DRUGS (5)
  1. LAMICTAL [Suspect]
     Indication: DRUG USE FOR UNKNOWN INDICATION
     Dosage: 50MG TWICE PER DAY
     Route: 048
     Dates: start: 20060825, end: 20060925
  2. DEPAKOTE [Concomitant]
     Indication: CONDUCT DISORDER
     Dosage: 500MG UNKNOWN
     Route: 048
     Dates: start: 20060909
  3. ZYPREXA [Concomitant]
     Indication: PSYCHOTIC DISORDER
     Dosage: 20MG AT NIGHT
     Route: 048
     Dates: start: 20060414
  4. REMERON [Concomitant]
     Dosage: 15MG AT NIGHT
     Route: 048
     Dates: start: 20060819
  5. METADATE CD [Concomitant]
     Indication: ATTENTION DEFICIT/HYPERACTIVITY DISORDER
     Dosage: 20MG IN THE MORNING
     Route: 048
     Dates: start: 20060922

REACTIONS (2)
  - RASH [None]
  - RASH GENERALISED [None]
